FAERS Safety Report 6760926-0 (Version None)
Quarter: 2010Q2

REPORT INFORMATION
  Report Type: 
  Country: None (occurrence: None)
  Receive Date: 20100608
  Receipt Date: 20100602
  Transmission Date: 20101027
  Serious: Yes (Hospitalization)
  Sender: FDA-Public Use
  Company Number: US-SANOFI-AVENTIS-2010SA016457

PATIENT
  Age: 79 Year
  Sex: Male
  Weight: 118.8 kg

DRUGS (3)
  1. LANTUS [Suspect]
     Dosage: DOSE:45 UNIT(S)
     Route: 058
  2. NOVOLOG [Concomitant]
     Dosage: 13 UNITS AT BREAKFAST, 7 UNITS AT LUNCH AND 5 UNITS AT SUPPER
  3. ALL OTHER THERAPEUTIC PRODUCTS [Concomitant]

REACTIONS (3)
  - BLOOD GLUCOSE INCREASED [None]
  - HYPOGLYCAEMIA [None]
  - PNEUMONIA [None]
